FAERS Safety Report 4521897-0 (Version None)
Quarter: 2004Q4

REPORT INFORMATION
  Report Type: 
  Country: None (occurrence: None)
  Receive Date: 20041207
  Receipt Date: 20041109
  Transmission Date: 20050328
  Serious: Yes (Hospitalization, Other)
  Sender: FDA-Public Use
  Company Number: 2004241294US

PATIENT
  Age: 80 Year
  Sex: Female
  Weight: 71.2147 kg

DRUGS (5)
  1. BEXTRA [Suspect]
     Indication: ILL-DEFINED DISORDER
     Dosage: 10 MG (10 MG, ONCE DAILY)
     Dates: start: 20030101, end: 20030101
  2. CELEBREX [Concomitant]
     Indication: ILL-DEFINED DISORDER
  3. TIAZAC [Concomitant]
  4. LASIX [Concomitant]
  5. SYNTHROID [Concomitant]

REACTIONS (9)
  - DIALYSIS [None]
  - FEELING ABNORMAL [None]
  - HEADACHE [None]
  - JOINT DISLOCATION [None]
  - LOCALISED INFECTION [None]
  - LOCALISED OSTEOARTHRITIS [None]
  - LUNG DISORDER [None]
  - POISONING [None]
  - RENAL DISORDER [None]
